FAERS Safety Report 23629576 (Version 1)
Quarter: 2024Q1

REPORT INFORMATION
  Report Type: Report from Study
  Country: US (occurrence: US)
  Receive Date: 20240314
  Receipt Date: 20240314
  Transmission Date: 20240410
  Serious: Yes (Other)
  Sender: FDA-Public Use
  Company Number: US-ABBVIE-5674702

PATIENT
  Sex: Female

DRUGS (1)
  1. VENCLEXTA [Suspect]
     Active Substance: VENETOCLAX
     Indication: Acute myeloid leukaemia
     Route: 048
     Dates: start: 2020

REACTIONS (4)
  - Leukaemia recurrent [Not Recovered/Not Resolved]
  - Malaise [Not Recovered/Not Resolved]
  - Blast cell count increased [Not Recovered/Not Resolved]
  - Product dispensing error [Unknown]
